FAERS Safety Report 8762227 (Version 1)
Quarter: 2012Q4

REPORT INFORMATION
  Report Type: 
  Country: US (occurrence: US)
  Receive Date: 20120830
  Receipt Date: 20120830
  Transmission Date: 20130627
  Serious: Yes (Hospitalization, Other)
  Sender: FDA-Public Use
  Company Number: US-PFIZER INC-2012211588

PATIENT
  Age: 59 Year
  Sex: Female
  Weight: 99.77 kg

DRUGS (7)
  1. NORVASC [Suspect]
     Indication: HYPERTENSION
     Dosage: 5 mg, 2x/day
  2. CAPTOPRIL [Suspect]
     Dosage: 50 mg, 3x/day
     Dates: end: 20120727
  3. PEPCID [Suspect]
     Indication: ABDOMINAL DISCOMFORT
     Dosage: UNK
     Dates: end: 20120727
  4. PLAVIX [Concomitant]
     Dosage: 75 mg, daily
  5. METFORMIN [Concomitant]
     Dosage: 1000 mg, 2x/day
  6. ACETYLSALICYLIC ACID [Concomitant]
     Dosage: 81 mg, daily
  7. ACETYLSALICYLIC ACID [Concomitant]
     Dosage: 325 mg, daily
     Dates: start: 20120730

REACTIONS (2)
  - Chest pain [Recovered/Resolved]
  - Coronary artery occlusion [Recovered/Resolved]
